FAERS Safety Report 20779885 (Version 3)
Quarter: 2022Q4

REPORT INFORMATION
  Report Type: Spontaneous
  Country: FR (occurrence: FR)
  Receive Date: 20220503
  Receipt Date: 20221222
  Transmission Date: 20230113
  Serious: Yes (Death)
  Sender: FDA-Public Use
  Company Number: FR-PURDUE PHARMA-USA-2022-0293392

PATIENT
  Age: 5 Month
  Sex: Male
  Weight: 6.45 kg

DRUGS (2)
  1. OXYCODONE HYDROCHLORIDE [Suspect]
     Active Substance: OXYCODONE HYDROCHLORIDE
     Indication: Maternal exposure during breast feeding
     Dosage: UNKNOWN
     Route: 063
  2. OXYMORPHONE [Suspect]
     Active Substance: OXYMORPHONE
     Indication: Maternal exposure during breast feeding
     Dosage: UNKNOWN
     Route: 063

REACTIONS (2)
  - Sudden infant death syndrome [Fatal]
  - Maternal exposure during breast feeding [Unknown]

NARRATIVE: CASE EVENT DATE: 20150801
